FAERS Safety Report 12916084 (Version 1)
Quarter: 2016Q4

REPORT INFORMATION
  Report Type: Spontaneous
  Country: US (occurrence: US)
  Receive Date: 20161104
  Receipt Date: 20161104
  Transmission Date: 20170207
  Serious: Yes (Life-Threatening)
  Sender: FDA-Public Use
  Company Number: PHEH2016US028636

PATIENT
  Age: 10 Year
  Sex: Male
  Weight: 25.4 kg

DRUGS (1)
  1. ILARIS [Suspect]
     Active Substance: CANAKINUMAB
     Indication: CHRONIC INFANTILE NEUROLOGICAL CUTANEOUS AND ARTICULAR SYNDROME
     Route: 058

REACTIONS (4)
  - Rash pustular [Recovering/Resolving]
  - Abscess [Recovering/Resolving]
  - Necrotising fasciitis [Recovering/Resolving]
  - Staphylococcal scalded skin syndrome [Recovering/Resolving]

NARRATIVE: CASE EVENT DATE: 20160723
